FAERS Safety Report 4376480-7 (Version None)
Quarter: 2004Q2

REPORT INFORMATION
  Report Type: 
  Country: None (occurrence: None)
  Receive Date: 20040608
  Receipt Date: 20040524
  Transmission Date: 20050107
  Serious: Yes (Death)
  Sender: FDA-Public Use
  Company Number: US-JNJFOC-20040505264

PATIENT
  Age: 35 Year
  Sex: Male

DRUGS (3)
  1. DURAGESIC [Suspect]
     Indication: INTENTIONAL MISUSE
     Dosage: INTRAVENOUS
     Route: 042
  2. PROPOXYPHENE HCL [Concomitant]
  3. AMITRYPTILLINE (AMITRIPTYLINE [Concomitant]

REACTIONS (7)
  - ACCIDENT [None]
  - CONTUSION [None]
  - INJECTION SITE DISCOLOURATION [None]
  - INJECTION SITE HAEMORRHAGE [None]
  - PULMONARY CONGESTION [None]
  - PULMONARY OEDEMA [None]
  - THERAPEUTIC AGENT TOXICITY [None]
